FAERS Safety Report 7402645-3 (Version None)
Quarter: 2011Q2

REPORT INFORMATION
  Report Type: 
  Country: None (occurrence: None)
  Receive Date: 20110408
  Receipt Date: 20110401
  Transmission Date: 20111010
  Serious: No
  Sender: FDA-Public Use
  Company Number: US-PFIZER INC-2011073854

PATIENT
  Sex: Female

DRUGS (2)
  1. LEXAPRO [Suspect]
     Indication: ANXIETY
     Dosage: UNK
  2. PRISTIQ [Suspect]
     Indication: ANXIETY
     Dosage: UNK

REACTIONS (2)
  - SOMNOLENCE [None]
  - FATIGUE [None]
